FAERS Safety Report 10187238 (Version 2)
Quarter: 2014Q2

REPORT INFORMATION
  Report Type: Spontaneous
  Country: TW (occurrence: TW)
  Receive Date: 20140522
  Receipt Date: 20140522
  Transmission Date: 20141212
  Serious: Yes (Hospitalization)
  Sender: FDA-Public Use
  Company Number: PHHY2014TW016302

PATIENT
  Age: 83 Year
  Sex: Female

DRUGS (2)
  1. ACLASTA [Suspect]
     Indication: OSTEOPOROSIS
     Dosage: 5 MG, PER 100 ML, ONCE YEAR
     Route: 042
     Dates: start: 201312
  2. FEMARA [Concomitant]
     Indication: BREAST CANCER
     Dosage: UNK UKN, UNK
     Route: 048

REACTIONS (9)
  - Tonsillitis [Not Recovered/Not Resolved]
  - Weight decreased [Unknown]
  - Oedema peripheral [Not Recovered/Not Resolved]
  - Oral mucosa erosion [Recovering/Resolving]
  - Gingival ulceration [Recovering/Resolving]
  - Tongue ulceration [Recovering/Resolving]
  - Pruritus generalised [Recovered/Resolved]
  - Nasopharyngitis [Recovering/Resolving]
  - Rash [Recovered/Resolved]
